FAERS Safety Report 6128775-4 (Version None)
Quarter: 2009Q1

REPORT INFORMATION
  Report Type: 
  Country: None (occurrence: None)
  Receive Date: 20090320
  Receipt Date: 20090312
  Transmission Date: 20090719
  Serious: Yes (Other)
  Sender: FDA-Public Use
  Company Number: 2009-00882

PATIENT
  Age: 67 Year
  Sex: Male
  Weight: 60.5 kg

DRUGS (7)
  1. VELCADE [Suspect]
     Indication: MULTIPLE MYELOMA
     Dosage: 2.3 MG  INTRAVENOUS
     Route: 042
     Dates: start: 20081121, end: 20090209
  2. DEXAMETHASONE [Concomitant]
  3. ACYCLOVIR [Concomitant]
  4. ALFUZOSIN (ALFUZOSIN) [Concomitant]
  5. OMEPRAZOLE [Concomitant]
  6. FLUCONAZOLE [Concomitant]
  7. ALLOPURINOL [Concomitant]

REACTIONS (4)
  - DISEASE PROGRESSION [None]
  - DRUG INEFFECTIVE [None]
  - INAPPROPRIATE ANTIDIURETIC HORMONE SECRETION [None]
  - PLASMACYTOMA [None]
